FAERS Safety Report 8021855-8 (Version None)
Quarter: 2011Q4

REPORT INFORMATION
  Report Type: 
  Country: None (occurrence: None)
  Receive Date: 20111230
  Receipt Date: 20111209
  Transmission Date: 20120403
  Serious: Yes (Death)
  Sender: FDA-Public Use
  Company Number: DSA_81494_2005

PATIENT
  Age: 44 Year
  Sex: Male
  Weight: 124.7392 kg

DRUGS (5)
  1. XYREM [Suspect]
     Indication: INSOMNIA
     Dosage: 8; 7 GM (4 GM, 2 IN 1 D), ORAL
     Route: 048
     Dates: end: 20051108
  2. XYREM [Suspect]
     Indication: INSOMNIA
     Dosage: 8; 7 GM (4 GM, 2 IN 1 D), ORAL
     Route: 048
     Dates: start: 20050921
  3. ALPRAZOLAM [Suspect]
     Indication: GENERALISED ANXIETY DISORDER
     Dosage: 0.5-1 MG
  4. QUETIAPINE [Suspect]
     Indication: PRODUCT USED FOR UNKNOWN INDICATION
  5. NORDIAZEPAM [Suspect]
     Indication: PRODUCT USED FOR UNKNOWN INDICATION

REACTIONS (10)
  - CONTINUOUS POSITIVE AIRWAY PRESSURE [None]
  - TOXICITY TO VARIOUS AGENTS [None]
  - INSOMNIA [None]
  - RESPIRATORY ARREST [None]
  - COGNITIVE DISORDER [None]
  - SLEEP PARALYSIS [None]
  - SLEEP APNOEA SYNDROME [None]
  - DRUG INTERACTION [None]
  - AGITATION [None]
  - ASPHYXIA [None]
